FAERS Safety Report 14341583 (Version 1)
Quarter: 2018Q1

REPORT INFORMATION
  Report Type: Spontaneous
  Country: JP (occurrence: JP)
  Receive Date: 20180102
  Receipt Date: 20180102
  Transmission Date: 20180509
  Serious: Yes (Other)
  Sender: FDA-Public Use
  Company Number: JP-009507513-1712JPN003291J

PATIENT
  Age: 7 Decade

DRUGS (1)
  1. BELSOMRA [Suspect]
     Active Substance: SUVOREXANT
     Dosage: UNK
     Route: 048
     Dates: start: 201709, end: 201710

REACTIONS (2)
  - Somnolence [Unknown]
  - Narcolepsy [Unknown]

NARRATIVE: CASE EVENT DATE: 201710
